FAERS Safety Report 10395677 (Version 1)
Quarter: 2014Q1

REPORT INFORMATION
  Report Type: Spontaneous
  Country: US (occurrence: None)
  Receive Date: 20130724
  Receipt Date: 20130724
  Transmission Date: 20141002
  Serious: Yes (Other)
  Sender: FDA-Public Use
  Company Number: PHEH2012US005614

PATIENT
  Age: 57 Year
  Sex: Male
  Weight: 97.5 kg

DRUGS (5)
  1. GLEEVEC (IMATINIB) TABLET, 400MG [Suspect]
     Indication: CHRONIC MYELOID LEUKAEMIA
     Dosage: 800 MG, QD (2 TABLETS OF 400 MG)
     Route: 048
     Dates: start: 20111015
  2. TRAZODONE [Concomitant]
  3. ZOLOFT (SERTRALINE HYDROCHLORIDE) [Concomitant]
  4. VICODIN (HYDROCODONE BITARTRATE, PARACETAMOL) [Concomitant]
  5. PREDNISONE [Concomitant]

REACTIONS (8)
  - Depression [None]
  - Weight increased [None]
  - Toxicity to various agents [None]
  - Decreased appetite [None]
  - Anxiety [None]
  - Nausea [None]
  - White blood cell count decreased [None]
  - Drug ineffective [None]
